FAERS Safety Report 14131830 (Version 3)
Quarter: 2022Q2

REPORT INFORMATION
  Report Type: Spontaneous
  Country: CA (occurrence: None)
  Receive Date: 20171026
  Receipt Date: 20220414
  Transmission Date: 20220721
  Serious: Yes (Death)
  Sender: FDA-Public Use
  Company Number: CA-ROCHE-2014074

PATIENT
  Age: 9 Year
  Sex: Male

DRUGS (3)
  1. CLONAZEPAM [Suspect]
     Active Substance: CLONAZEPAM
     Indication: Sedation
     Route: 065
  2. BOTULINUM TOXIN TYPE A [Suspect]
     Active Substance: BOTULINUM TOXIN TYPE A
     Indication: Cerebral palsy
     Route: 065
  3. VALPROIC ACID [Suspect]
     Active Substance: VALPROIC ACID
     Indication: Cerebral palsy
     Route: 065

REACTIONS (3)
  - Lethargy [Fatal]
  - Respiratory failure [Fatal]
  - Off label use [Fatal]
